FAERS Safety Report 8392374 (Version 5)
Quarter: 2012Q4

REPORT INFORMATION
  Report Type: 
  Country: GB (occurrence: GB)
  Receive Date: 20120206
  Receipt Date: 20121224
  Transmission Date: 20130627
  Serious: Yes (Death, Other)
  Sender: FDA-Public Use
  Company Number: PHFR2012GB000991

PATIENT
  Sex: Male

DRUGS (9)
  1. CLOZARIL [Suspect]
     Indication: SCHIZOPHRENIA
     Dosage: 250 mg, daily
     Route: 048
     Dates: start: 20100924
  2. CLOZARIL [Suspect]
     Dosage: 225 UNK, UNK
     Route: 048
  3. OLANZAPINE [Concomitant]
     Indication: SCHIZOPHRENIA
     Dosage: 15 mg, daily
     Route: 048
     Dates: start: 20111006
  4. ZOPICLONE [Concomitant]
     Indication: SLEEP DISORDER
     Dosage: 3.75 mg, daily
     Route: 048
     Dates: start: 201106
  5. ZOPICLONE [Concomitant]
     Dosage: 3.5 UNK, UNK
     Route: 048
  6. AMITRIPTYLINE [Concomitant]
     Indication: PAIN
     Dosage: 200 mg, daily
     Route: 048
     Dates: start: 201107
  7. HYOSCINE HYDROBROMIDE [Concomitant]
     Indication: SALIVARY HYPERSECRETION
     Dosage: 300 ug, daily
     Route: 048
     Dates: start: 201107
  8. HYOSCINE HYDROBROMIDE [Concomitant]
     Dosage: 100 mg, UNK
     Route: 048
  9. SERTRALINE [Concomitant]
     Indication: DEPRESSION
     Dosage: 600 mg, UNK
     Route: 048

REACTIONS (3)
  - Heart disease congenital [Fatal]
  - Aortic stenosis [Unknown]
  - Electrocardiogram QT prolonged [Unknown]
